FAERS Safety Report 24047566 (Version 1)
Quarter: 2024Q3

REPORT INFORMATION
  Report Type: Spontaneous
  Country: US (occurrence: US)
  Receive Date: 20240703
  Receipt Date: 20240703
  Transmission Date: 20241017
  Serious: Yes (Hospitalization)
  Sender: ELI LILLY AND CO
  Company Number: US-ELI_LILLY_AND_COMPANY-US202406016117

PATIENT
  Age: 74 Year
  Sex: Female

DRUGS (3)
  1. PROZAC [Interacting]
     Active Substance: FLUOXETINE HYDROCHLORIDE
     Indication: Product used for unknown indication
     Dosage: UNK UNK, UNKNOWN
     Route: 065
  2. LENVIMA [Interacting]
     Active Substance: LENVATINIB
     Indication: Endometrial cancer
     Dosage: 20 MG, DAILY
     Route: 048
     Dates: start: 20240531, end: 202406
  3. KEYTRUDA [Concomitant]
     Active Substance: PEMBROLIZUMAB
     Indication: Product used for unknown indication
     Dosage: UNK UNK, UNKNOWN
     Route: 065

REACTIONS (8)
  - Cardiac disorder [Unknown]
  - Dyspnoea [Unknown]
  - Pharyngeal swelling [Unknown]
  - Dysphagia [Unknown]
  - Throat tightness [Unknown]
  - Drug interaction [Unknown]
  - Fatigue [Unknown]
  - Nervousness [Unknown]

NARRATIVE: CASE EVENT DATE: 20240601
